FAERS Safety Report 7962403-8 (Version None)
Quarter: 2011Q4

REPORT INFORMATION
  Report Type: 
  Country: None (occurrence: None)
  Receive Date: 20111121
  Receipt Date: 20110919
  Transmission Date: 20120403
  Serious: No
  Sender: FDA-Public Use
  Company Number: 1000023980

PATIENT
  Age: 66 Year
  Sex: Male

DRUGS (8)
  1. BUPROPION (BUOPROPION) (BUPROPION) [Concomitant]
  2. LIPITOR (ATORVASTATIN CALCIUIM) (ATORVASTATIN CALCIUM) [Concomitant]
  3. VIIBRYD [Suspect]
     Indication: DEPRESSION
     Dosage: 10;20;30;40 MG (10;20;30;40 MG, 1 IN 1 D), ORAL
     Route: 048
     Dates: start: 20110821, end: 20110827
  4. VIIBRYD [Suspect]
     Indication: DEPRESSION
     Dosage: 10;20;30;40 MG (10;20;30;40 MG, 1 IN 1 D), ORAL
     Route: 048
     Dates: start: 20110911
  5. VIIBRYD [Suspect]
     Indication: DEPRESSION
     Dosage: 10;20;30;40 MG (10;20;30;40 MG, 1 IN 1 D), ORAL
     Route: 048
     Dates: start: 20110828, end: 20110903
  6. VIIBRYD [Suspect]
     Indication: DEPRESSION
     Dosage: 10;20;30;40 MG (10;20;30;40 MG, 1 IN 1 D), ORAL
     Route: 048
     Dates: start: 20110904, end: 20110910
  7. KLONOPIN [Concomitant]
  8. DIOVAN HCT [Concomitant]

REACTIONS (4)
  - FLATULENCE [None]
  - ABDOMINAL PAIN UPPER [None]
  - ABDOMINAL DISTENSION [None]
  - DIARRHOEA [None]
